FAERS Safety Report 10452559 (Version 1)
Quarter: 2014Q3

REPORT INFORMATION
  Report Type: Spontaneous
  Country: US (occurrence: US)
  Receive Date: 20140915
  Receipt Date: 20140915
  Transmission Date: 20150326
  Serious: No
  Sender: FDA-Public Use
  Company Number: US-PFIZER INC-2014252154

PATIENT
  Sex: Male

DRUGS (2)
  1. LIPITOR [Suspect]
     Active Substance: ATORVASTATIN CALCIUM
  2. ZOCOR [Suspect]
     Active Substance: SIMVASTATIN

REACTIONS (1)
  - Drug hypersensitivity [Unknown]
